FAERS Safety Report 7078430-1 (Version None)
Quarter: 2010Q4

REPORT INFORMATION
  Report Type: 
  Country: None (occurrence: None)
  Receive Date: 20101101
  Receipt Date: 20101101
  Transmission Date: 20110411
  Serious: No
  Sender: FDA-Public Use
  Company Number: None

PATIENT
  Age: 35 Year
  Sex: Female

DRUGS (1)
  1. PROAIR HFA [Suspect]
     Dosage: 2 PUFFS BY MOUTH FOUR TIMES A DAY AS NEEDED
     Route: 048

REACTIONS (1)
  - DEVICE MALFUNCTION [None]
